FAERS Safety Report 9203487 (Version 1)
Quarter: 2013Q1

REPORT INFORMATION
  Report Type: Spontaneous
  Country: GB (occurrence: None)
  Receive Date: 20130328
  Receipt Date: 20130328
  Transmission Date: 20140127
  Serious: Yes (Disabling, Other)
  Sender: FDA-Public Use
  Company Number: 08-AUR-04980

PATIENT
  Age: 60 Year
  Sex: Female

DRUGS (5)
  1. FLUOXETINE (FLUOXETINE) [Suspect]
     Indication: DEPRESSION
  2. PAROXETINE (PAROXETINE) [Suspect]
     Indication: DEPRESSION
  3. SERTRALINE (SERTRALINE) (SERTRALINE) [Suspect]
     Indication: DEPRESSION
  4. ESCITALOPRAM (ESCITALOPRAM) [Suspect]
     Indication: DEPRESSION
  5. VENLAFAXINE [Suspect]
     Indication: DEPRESSION

REACTIONS (2)
  - Female sexual arousal disorder [None]
  - Emotional distress [None]
